FAERS Safety Report 22223991 (Version 1)
Quarter: 2023Q2

REPORT INFORMATION
  Report Type: Spontaneous
  Country: CA (occurrence: CA)
  Receive Date: 20230418
  Receipt Date: 20230418
  Transmission Date: 20230722
  Serious: Yes (Other)
  Sender: FDA-Public Use
  Company Number: CA-PFIZER INC-202201269379

PATIENT
  Age: 64 Year
  Sex: Male
  Weight: 87 kg

DRUGS (33)
  1. RUXIENCE [Suspect]
     Active Substance: RITUXIMAB-PVVR
     Indication: Focal segmental glomerulosclerosis
     Dosage: 1 G EVERY 2 WEEKS, 2 DOSES (1 G Q 2 WEEKS X2 DOSES)
     Route: 042
     Dates: start: 20230119
  2. RUXIENCE [Suspect]
     Active Substance: RITUXIMAB-PVVR
     Dosage: UNK
     Dates: start: 20230201
  3. RUXIENCE [Suspect]
     Active Substance: RITUXIMAB-PVVR
     Dosage: 1 G EVERY 2 WEEKS, 2 DOSES (RECEIVED Q5 WEEK AND 1 DAY)
     Route: 042
     Dates: start: 20230309, end: 20230309
  4. ACETAMINOPHEN [Concomitant]
     Active Substance: ACETAMINOPHEN
     Indication: Premedication
     Dosage: 37.5 MG- 325 MG  1TABLET  TWO TIMES DAILY 60 DAYS
     Route: 048
     Dates: start: 20211112
  5. ACETAMINOPHEN [Concomitant]
     Active Substance: ACETAMINOPHEN
     Indication: Migraine
     Dosage: UNK
     Dates: start: 20230309, end: 20230309
  6. ATORVASTATIN CALCIUM [Concomitant]
     Active Substance: ATORVASTATIN CALCIUM
     Dosage: 20 MG 90 DAYS STARTING 1 TABLET EVERY DAY AT BED TIME
     Route: 048
     Dates: start: 20230106
  7. BISOPROLOL [Concomitant]
     Active Substance: BISOPROLOL
     Dosage: UNK
  8. BISOPROLOL FUMARATE [Concomitant]
     Active Substance: BISOPROLOL FUMARATE
     Dosage: 5 MG 1 TABLET ONCE DAILY 90 DAYS STARTEING
     Route: 048
     Dates: start: 20221007
  9. CANDESARTAN [Concomitant]
     Active Substance: CANDESARTAN
     Dosage: UNK
  10. CANDESARTAN [Concomitant]
     Active Substance: CANDESARTAN
     Dosage: UNK
     Dates: start: 20230201
  11. CANDESARTAN CILEXETIL [Concomitant]
     Active Substance: CANDESARTAN CILEXETIL
     Dosage: 16 MG 1.5 MG TABLET ONCE DAILY, 90 DAYS
     Route: 048
     Dates: start: 20221007
  12. CALCIUM [Concomitant]
     Active Substance: CALCIUM
     Dosage: 500 MG DISPENSE AS CALCIUM CARBONATE 1250 MG CALCIUM CARBONATE 1250 = 500 MG ELEMENTAL CALCIUM 90 DA
     Route: 048
     Dates: start: 20211112
  13. CETIRIZINE HYDROCHLORIDE [Concomitant]
     Active Substance: CETIRIZINE HYDROCHLORIDE
     Indication: Premedication
     Dosage: 20 MG TAKE 1-2 HOURS PRIOR TO RITUXIMAB INFUSION
     Route: 048
     Dates: start: 20230126
  14. CHOLECALCIFEROL [Concomitant]
     Active Substance: CHOLECALCIFEROL
     Dosage: 25 UG (1000 UNIT EVERDAY BED AT BEDTIME VITAMIN D3 90 DAYS
     Route: 048
     Dates: start: 20211112
  15. DIPHENHYDRAMINE [Concomitant]
     Active Substance: DIPHENHYDRAMINE
     Indication: Premedication
     Dosage: UNK
     Dates: start: 20230119, end: 20230119
  16. DOXAZOSIN MESYLATE [Concomitant]
     Active Substance: DOXAZOSIN MESYLATE
     Dosage: 2 MG 1 TABLET EVERY DAY AT BEDTIME 90 DAYS
     Route: 048
     Dates: start: 20220524
  17. FISH OIL [Concomitant]
     Active Substance: FISH OIL
     Dosage: 1 CAPSULE ONCE DAILY 90 DAY
     Dates: start: 20211217
  18. FUROSEMIDE [Concomitant]
     Active Substance: FUROSEMIDE
     Indication: Swelling
     Dosage: 40 MG AND ADDITIONAL 60 MG DOSE IN PM PRN FOR SWELLING 2 TIME ONCE A DAILY 90 DAYS (2 TABLETS)
     Route: 048
     Dates: start: 20221007
  19. MAGNESIUM CITRATE [Concomitant]
     Active Substance: MAGNESIUM CITRATE
     Dosage: 2 TABLETS DAILY
     Dates: start: 20211217
  20. METHYLPREDNISOLONE [Concomitant]
     Active Substance: METHYLPREDNISOLONE
     Indication: Premedication
     Dosage: UNK
     Dates: start: 20230119, end: 20230119
  21. METHYLPREDNISOLONE [Concomitant]
     Active Substance: METHYLPREDNISOLONE
     Dosage: UNK
     Dates: start: 20230309, end: 20230309
  22. METOLAZONE [Concomitant]
     Active Substance: METOLAZONE
     Dosage: 2.5 MG 1 TABLET THREE TIMES/WEEK 90 DAYS STARTING
     Route: 048
     Dates: start: 20221104
  23. PREDNISONE [Concomitant]
     Active Substance: PREDNISONE
     Dosage: UNK
  24. PREDNISONE [Concomitant]
     Active Substance: PREDNISONE
     Dosage: 5 MG ORAL TABLET TAKE IN AM WITH FOOD  4 TABLETS ONCE A DAILY 90 DAYS
     Route: 048
     Dates: start: 20220726
  25. RABEPRAZOLE SODIUM [Concomitant]
     Active Substance: RABEPRAZOLE SODIUM
     Dosage: 20 MG DELAYED RELEASE 90 DAYS
     Route: 048
     Dates: start: 20211112
  26. ROSUVASTATIN [Concomitant]
     Active Substance: ROSUVASTATIN
     Dosage: UNK
  27. RISEDRONATE SODIUM [Concomitant]
     Active Substance: RISEDRONATE SODIUM
     Dosage: 35 MG, WEEKLY 90 DAYS
     Route: 048
     Dates: start: 20211112
  28. SULFAMETHOXAZOLE [Concomitant]
     Active Substance: SULFAMETHOXAZOLE
     Dosage: 800 MG -160 MG ORAL TABLET  1 TABLET THREE TIMES /WEEK
     Route: 048
     Dates: start: 20211112
  29. TACROLIMUS [Concomitant]
     Active Substance: TACROLIMUS
     Dosage: UNK
  30. TACROLIMUS [Concomitant]
     Active Substance: TACROLIMUS
     Dosage: 1 MG 2 CAPSULE TWO TIMES DAILY PROGRAF-IMMEDIATE RELEASE 90 DAYS
     Route: 048
     Dates: start: 20220223
  31. TRAMADOL HCL [Concomitant]
     Active Substance: TRAMADOL HYDROCHLORIDE
     Indication: Migraine
     Dosage: 37.5 MG- 325 MG  1TABLET  TWO TIMES DAILY 60 DAYS
     Route: 048
     Dates: start: 20211112
  32. TRIMETHOPRIM [Concomitant]
     Active Substance: TRIMETHOPRIM
     Dosage: 800 MG -160 MG ORAL TABLET  1 TABLET THREE TIMES /WEEK
     Route: 048
     Dates: start: 20211112
  33. DICLOFENAC DIETHYLAMINE [Concomitant]
     Active Substance: DICLOFENAC DIETHYLAMINE
     Indication: Neck pain
     Dosage: UNK 1.16 % GEL
     Dates: start: 20211112

REACTIONS (6)
  - Hypertension [Recovered/Resolved]
  - Throat tightness [Recovering/Resolving]
  - Oropharyngeal pain [Recovering/Resolving]
  - Heart rate irregular [Unknown]
  - Off label use [Unknown]
  - Inappropriate schedule of product administration [Unknown]

NARRATIVE: CASE EVENT DATE: 20230119
